FAERS Safety Report 7064446-8 (Version None)
Quarter: 2010Q4

REPORT INFORMATION
  Report Type: 
  Country: None (occurrence: None)
  Receive Date: 20101027
  Receipt Date: 20101022
  Transmission Date: 20110411
  Serious: Yes (Death, Hospitalization, Other)
  Sender: FDA-Public Use
  Company Number: PHHY2010US35368

PATIENT
  Sex: Male

DRUGS (1)
  1. EXJADE [Suspect]
     Dosage: 1375 MG, QD
     Route: 048
     Dates: start: 20100525

REACTIONS (7)
  - ABDOMINAL DISCOMFORT [None]
  - BONE MARROW TRANSPLANT [None]
  - DEATH [None]
  - DIARRHOEA [None]
  - HEADACHE [None]
  - MALIGNANT NEOPLASM PROGRESSION [None]
  - NAUSEA [None]
